FAERS Safety Report 9384679 (Version 1)
Quarter: 2013Q3

REPORT INFORMATION
  Report Type: Spontaneous
  Country: US (occurrence: US)
  Receive Date: 20130705
  Receipt Date: 20130705
  Transmission Date: 20140515
  Serious: Yes (Hospitalization, Other)
  Sender: FDA-Public Use
  Company Number: US-PFIZER INC-2013197378

PATIENT
  Age: 62 Year
  Sex: Female
  Weight: 61.68 kg

DRUGS (2)
  1. GEODON [Suspect]
     Dosage: 180 MG ((BY TAKING THREE CAPSULES OF 60MG)), 1X/DAY
     Route: 048
     Dates: start: 201207
  2. GEODON [Suspect]
     Dosage: 120 MG ((BY TAKING TWO CAPSULES OF 60MG), 1X/DAY
     Route: 048
     Dates: start: 201306

REACTIONS (4)
  - Road traffic accident [Unknown]
  - Lower limb fracture [Unknown]
  - Upper limb fracture [Unknown]
  - Gait disturbance [Unknown]
